FAERS Safety Report 4695036-X (Version None)
Quarter: 2005Q2

REPORT INFORMATION
  Report Type: 
  Country: None (occurrence: None)
  Receive Date: 20050617
  Receipt Date: 20050607
  Transmission Date: 20051028
  Serious: Yes (Disabling)
  Sender: FDA-Public Use
  Company Number: 032-5

PATIENT
  Age: 54 Year
  Sex: Male

DRUGS (8)
  1. TEVETEN [Suspect]
     Indication: HYPERTENSION
  2. METHYLDOPA [Concomitant]
  3. COVERSYL PLUS [Concomitant]
  4. ATENOLOL [Concomitant]
  5. METFORMIN HCL [Concomitant]
  6. GLIPIZIDE [Concomitant]
  7. AMLODIPINE BESYLATE [Concomitant]
  8. ATORVASTATIN CALCIUM [Concomitant]

REACTIONS (1)
  - CEREBROVASCULAR ACCIDENT [None]
